FAERS Safety Report 9632054 (Version 1)
Quarter: 2013Q4

REPORT INFORMATION
  Report Type: Spontaneous
  Country: US (occurrence: US)
  Receive Date: 20131018
  Receipt Date: 20131018
  Transmission Date: 20140711
  Serious: No
  Sender: FDA-Public Use
  Company Number: US-TEVA-438712USA

PATIENT
  Age: 40 Year
  Sex: Female
  Weight: 43.58 kg

DRUGS (1)
  1. PARAGARD 380A [Suspect]
     Indication: CONTRACEPTION
     Route: 015
     Dates: start: 20130920

REACTIONS (5)
  - Metrorrhagia [Recovered/Resolved]
  - Medical device complication [Unknown]
  - Menorrhagia [Unknown]
  - Metrorrhagia [Recovered/Resolved]
  - Muscle spasms [Not Recovered/Not Resolved]
